FAERS Safety Report 8582451-7 (Version None)
Quarter: 2012Q3

REPORT INFORMATION
  Report Type: 
  Country: None (occurrence: None)
  Receive Date: 20120809
  Receipt Date: 20120726
  Transmission Date: 20120928
  Serious: Yes (Death, Other)
  Sender: FDA-Public Use
  Company Number: PT-ROCHE-1079390

PATIENT
  Sex: Female
  Weight: 52 kg

DRUGS (9)
  1. LEUCOVORIN CALCIUM [Concomitant]
  2. AMITRIPTYLINE HCL [Concomitant]
     Dates: start: 20050126
  3. AVASTIN [Suspect]
     Indication: PRODUCT USED FOR UNKNOWN INDICATION
  4. FLUOROURACIL [Concomitant]
  5. OXALIPLATIN [Concomitant]
  6. CHLORPROMAZINE HCL [Concomitant]
     Dates: start: 20050126
  7. DIHYDROCODEIN [Concomitant]
     Dates: start: 20051227
  8. CENTRUM [Concomitant]
     Dates: start: 20050126
  9. METOCLOPRAMIDE [Concomitant]
     Dates: start: 20050126

REACTIONS (5)
  - METASTASES TO BONE [None]
  - METASTASES TO BLADDER [None]
  - DISEASE PROGRESSION [None]
  - COLON CANCER [None]
  - METASTASES TO LYMPH NODES [None]
